FAERS Safety Report 4649977-X (Version None)
Quarter: 2005Q2

REPORT INFORMATION
  Report Type: 
  Country: None (occurrence: None)
  Receive Date: 20050428
  Receipt Date: 20050201
  Transmission Date: 20051028
  Serious: Yes (Hospitalization)
  Sender: FDA-Public Use
  Company Number: 2005000256

PATIENT
  Age: 80 Year
  Sex: Female
  Weight: 55.7924 kg

DRUGS (15)
  1. TARCEVA [Suspect]
     Indication: NON-SMALL CELL LUNG CANCER
     Dosage: SEE IMAGE
     Route: 048
     Dates: start: 20050118, end: 20050219
  2. TARCEVA [Suspect]
     Indication: NON-SMALL CELL LUNG CANCER
     Dosage: SEE IMAGE
     Route: 048
     Dates: start: 20050331
  3. PRILOSEC [Concomitant]
  4. AMARYL [Concomitant]
  5. DILTIAZEM [Concomitant]
  6. MACROBID [Concomitant]
  7. ATACAND [Concomitant]
  8. METFORMIN HCL [Concomitant]
  9. SYNTHROID [Concomitant]
  10. SIMVASTATIN [Concomitant]
  11. DETROL [Concomitant]
  12. INDAPAMIDE [Concomitant]
  13. TAMOXIFEN (TAMOXIFEN) [Concomitant]
  14. VICODIN [Concomitant]
  15. XANAX [Concomitant]

REACTIONS (17)
  - CANDIDIASIS [None]
  - CHILLS [None]
  - COUGH [None]
  - DEHYDRATION [None]
  - DIARRHOEA [None]
  - DIZZINESS [None]
  - DRY SKIN [None]
  - HYPERTENSION [None]
  - HYPOGLYCAEMIA [None]
  - HYPOTENSION [None]
  - INFLUENZA LIKE ILLNESS [None]
  - ORAL PAIN [None]
  - PNEUMONIA [None]
  - PYREXIA [None]
  - SKIN FISSURES [None]
  - VOMITING [None]
  - WEIGHT DECREASED [None]
